FAERS Safety Report 5312712-6 (Version None)
Quarter: 2007Q2

REPORT INFORMATION
  Report Type: 
  Country: None (occurrence: None)
  Receive Date: 20070430
  Receipt Date: 20070418
  Transmission Date: 20071010
  Serious: Yes (Other)
  Sender: FDA-Public Use
  Company Number: PT-PURDUE-USA_2007_0027146

PATIENT
  Age: 60 Year
  Sex: Female

DRUGS (4)
  1. MORPHINE SULFATE [Suspect]
     Indication: PALLIATIVE CARE
     Dates: start: 20050901
  2. AMITRIPTYLINE HCL [Concomitant]
     Indication: DEPRESSION
     Dosage: 50 MG, NOCTE
  3. TRAZODONE HCL [Concomitant]
     Indication: DEPRESSION
     Dosage: 100 MG, NOCTE
  4. BROMAZEPAM [Concomitant]
     Dosage: 3 MG, NOCTE

REACTIONS (8)
  - BLOOD CREATININE INCREASED [None]
  - BODY TEMPERATURE INCREASED [None]
  - CALCIUM IONISED INCREASED [None]
  - CONFUSIONAL STATE [None]
  - OXYGEN SATURATION DECREASED [None]
  - RESPIRATORY RATE DECREASED [None]
  - RHONCHI [None]
  - SOMNOLENCE [None]
